FAERS Safety Report 4658515-7 (Version None)
Quarter: 2005Q2

REPORT INFORMATION
  Report Type: 
  Country: None (occurrence: None)
  Receive Date: 20050510
  Receipt Date: 20050510
  Transmission Date: 20051028
  Serious: Yes (Other)
  Sender: FDA-Public Use
  Company Number: None

PATIENT
  Age: 53 Year
  Sex: Male
  Weight: 97.977 kg

DRUGS (2)
  1. LEVAQUIN [Suspect]
     Indication: SINUSITIS
     Dosage: 500MG   DAILY   ORAL
     Route: 048
     Dates: start: 20050310, end: 20050406
  2. AVELOX [Suspect]
     Indication: SINUSITIS
     Dosage: 400MG    DAILY   ORAL
     Route: 048
     Dates: start: 20050420, end: 20050422

REACTIONS (3)
  - ANXIETY [None]
  - DEPRESSION [None]
  - SUICIDAL IDEATION [None]
